FAERS Safety Report 24926247 (Version 2)
Quarter: 2025Q3

REPORT INFORMATION
  Report Type: Report from Study
  Country: US (occurrence: US)
  Receive Date: 20250205
  Receipt Date: 20250718
  Transmission Date: 20251021
  Serious: Yes (Hospitalization, Other)
  Sender: ASTELLAS
  Company Number: US-ASTELLAS-2025-AER-006424

PATIENT
  Age: 81 Year
  Sex: Male

DRUGS (5)
  1. ENZALUTAMIDE [Suspect]
     Active Substance: ENZALUTAMIDE
     Indication: Product used for unknown indication
     Route: 065
  2. ORGOVYX [Suspect]
     Active Substance: RELUGOLIX
     Indication: Prostate cancer
     Route: 048
     Dates: start: 20240906, end: 20240907
  3. ORGOVYX [Suspect]
     Active Substance: RELUGOLIX
     Route: 048
     Dates: start: 20220906
  4. ORGOVYX [Suspect]
     Active Substance: RELUGOLIX
     Route: 048
     Dates: end: 20240907
  5. GABAPENTIN [Suspect]
     Active Substance: GABAPENTIN
     Indication: Product used for unknown indication
     Route: 065

REACTIONS (13)
  - Diplegia [Unknown]
  - Wrist fracture [Unknown]
  - Fall [Unknown]
  - Muscular weakness [Unknown]
  - Gait inability [Unknown]
  - Confusional state [Unknown]
  - Malaise [Unknown]
  - Lethargy [Unknown]
  - White blood cell count decreased [Unknown]
  - Hot flush [Unknown]
  - Fatigue [Unknown]
  - Red blood cell count decreased [Unknown]
  - Back pain [Unknown]
